FAERS Safety Report 6714350-7 (Version None)
Quarter: 2010Q2

REPORT INFORMATION
  Report Type: 
  Country: None (occurrence: None)
  Receive Date: 20100506
  Receipt Date: 20100426
  Transmission Date: 20101027
  Serious: Yes (Life-Threatening, Hospitalization)
  Sender: FDA-Public Use
  Company Number: US-ELI_LILLY_AND_COMPANY-US201004001566

PATIENT
  Age: 7 Year
  Sex: Male

DRUGS (4)
  1. ZYPREXA ZYDIS [Suspect]
     Indication: BIPOLAR DISORDER
     Dosage: UNK, UNKNOWN
     Route: 065
     Dates: start: 20090101
  2. DEPAKOTE [Concomitant]
     Dosage: 125 MG, 4/D
  3. TENEX [Concomitant]
     Dosage: 1 MG, 3/D
  4. FOCALIN [Concomitant]
     Dosage: 10 MG, 3/D

REACTIONS (3)
  - CONSTIPATION [None]
  - MEGACOLON [None]
  - OFF LABEL USE [None]
